FAERS Safety Report 10278679 (Version 5)
Quarter: 2014Q4

REPORT INFORMATION
  Report Type: Report from Study
  Country: CA (occurrence: CA)
  Receive Date: 20140704
  Receipt Date: 20141204
  Transmission Date: 20150528
  Serious: Yes (Hospitalization, Other)
  Sender: FDA-Public Use
  Company Number: CA-AMGEN-CANSP2014045304

PATIENT
  Age: 83 Year
  Sex: Female
  Weight: 56 kg

DRUGS (12)
  1. PROLIA [Suspect]
     Active Substance: DENOSUMAB
     Indication: OSTEOPOROSIS POSTMENOPAUSAL
     Dosage: 60 MG/ML, Q6MO
     Route: 058
     Dates: start: 20120626
  2. DIABETA                            /00145301/ [Concomitant]
     Dosage: 10 MG, BID
     Route: 048
  3. GLUCOBAY [Concomitant]
     Active Substance: ACARBOSE
     Dosage: 100 MG, BID
     Route: 048
  4. PROLIA [Suspect]
     Active Substance: DENOSUMAB
     Dosage: UNK
     Route: 058
  5. PROLIA [Suspect]
     Active Substance: DENOSUMAB
     Dosage: UNK
     Route: 058
  6. LASIX [Concomitant]
     Active Substance: FUROSEMIDE
  7. PROLIA [Suspect]
     Active Substance: DENOSUMAB
     Dosage: UNK
     Route: 058
  8. JANUVIA [Concomitant]
     Active Substance: SITAGLIPTIN PHOSPHATE
     Dosage: 100 MG, QD
     Route: 048
  9. METFORMIN [Concomitant]
     Active Substance: METFORMIN HYDROCHLORIDE
     Dosage: 1000 MG, BID
     Route: 048
     Dates: start: 20131206
  10. ZOCOR [Concomitant]
     Active Substance: SIMVASTATIN
     Dosage: 10 MG, QD
     Route: 048
  11. ALTACE [Concomitant]
     Active Substance: RAMIPRIL
     Dosage: UNK UNK, QD
     Route: 048
  12. ANCEF [Concomitant]
     Active Substance: CEFAZOLIN SODIUM

REACTIONS (48)
  - Troponin increased [Unknown]
  - Melaena [Unknown]
  - Depressed level of consciousness [Unknown]
  - Hyperlipidaemia [Unknown]
  - Metabolic syndrome [Unknown]
  - Skin induration [Unknown]
  - Pyrexia [Not Recovered/Not Resolved]
  - Hypoxic-ischaemic encephalopathy [Unknown]
  - Acute kidney injury [Unknown]
  - Confusional state [Unknown]
  - Pneumonia [Unknown]
  - Respiratory disorder [Unknown]
  - Coma [Recovered/Resolved]
  - Fall [Recovered/Resolved]
  - Hypertension [Unknown]
  - Feeling hot [Unknown]
  - Peripheral swelling [Unknown]
  - Speech disorder [Not Recovered/Not Resolved]
  - Walking disability [Not Recovered/Not Resolved]
  - Tachycardia [Unknown]
  - Hypotension [Unknown]
  - Osteoarthritis [Unknown]
  - Tenderness [Unknown]
  - Delirium [Unknown]
  - Cardiac failure congestive [Unknown]
  - Hypovolaemic shock [Unknown]
  - Pain in extremity [Unknown]
  - Blood lactic acid increased [Unknown]
  - Anaemia [Unknown]
  - Acute coronary syndrome [Unknown]
  - Septic shock [Unknown]
  - Metabolic acidosis [Unknown]
  - Humerus fracture [Recovered/Resolved]
  - Haematoma [Unknown]
  - Brain injury [Unknown]
  - Depressed level of consciousness [Not Recovered/Not Resolved]
  - Bradycardia [Unknown]
  - Erythema [Unknown]
  - Fungal infection [Unknown]
  - Cellulitis [Recovered/Resolved]
  - Pain [Unknown]
  - Muscle rigidity [Unknown]
  - Myocardial infarction [Unknown]
  - Gastric ulcer haemorrhage [Unknown]
  - Quadriparesis [Unknown]
  - Hyperkalaemia [Unknown]
  - Musculoskeletal stiffness [Unknown]
  - Contusion [Unknown]

NARRATIVE: CASE EVENT DATE: 201208
